FAERS Safety Report 9814035 (Version 3)
Quarter: 2014Q1

REPORT INFORMATION
  Report Type: Spontaneous
  Country: US (occurrence: US)
  Receive Date: 20140113
  Receipt Date: 20140120
  Transmission Date: 20141002
  Serious: Yes (Death, Life-Threatening, Hospitalization, Other)
  Sender: FDA-Public Use
  Company Number: US-009507513-1401USA004002

PATIENT
  Sex: Male
  Weight: 95.24 kg

DRUGS (2)
  1. JANUVIA [Suspect]
     Indication: TYPE 2 DIABETES MELLITUS
     Dosage: 100 MG, QD
     Route: 048
     Dates: start: 20081101, end: 20100106
  2. JANUVIA [Suspect]
     Dosage: 100 MG, QD
     Route: 048
     Dates: start: 20100108, end: 20120215

REACTIONS (25)
  - Pancreatic carcinoma [Fatal]
  - Tumour excision [Unknown]
  - Dyspepsia [Unknown]
  - Cholelithiasis [Unknown]
  - Surgery [Unknown]
  - Coronary artery bypass [Unknown]
  - Surgery [Unknown]
  - Hypercholesterolaemia [Unknown]
  - Depression [Unknown]
  - Lumbar vertebral fracture [Unknown]
  - Cardiac failure congestive [Unknown]
  - Bronchitis [Unknown]
  - Benign prostatic hyperplasia [Unknown]
  - Hypoacusis [Unknown]
  - Gastric ulcer [Unknown]
  - Back pain [Unknown]
  - Liver disorder [Unknown]
  - Diabetes mellitus inadequate control [Fatal]
  - Erectile dysfunction [Unknown]
  - Urge incontinence [Unknown]
  - Urine flow decreased [Unknown]
  - Urinary retention [Unknown]
  - Fibula fracture [Unknown]
  - Adenocarcinoma gastric [Unknown]
  - Coronary artery disease [Fatal]
